FAERS Safety Report 15366782 (Version 1)
Quarter: 2018Q3

REPORT INFORMATION
  Report Type: Spontaneous
  Country: US (occurrence: US)
  Receive Date: 20180902
  Receipt Date: 20180902
  Transmission Date: 20181010
  Serious: Yes (Other)
  Sender: FDA-Public Use
  Company Number: None

PATIENT
  Age: 46 Year
  Sex: Male
  Weight: 94.95 kg

DRUGS (8)
  1. CVS HEALTH STERILE SALINE NASAL MIST #955517 [Suspect]
     Active Substance: SODIUM CHLORIDE
     Indication: SEASONAL ALLERGY
     Dosage: ?          QUANTITY:1 DF DOSAGE FORM;?
     Route: 055
     Dates: start: 20170410, end: 20180818
  2. FLINTSTONE EXTRA D [Concomitant]
  3. SIMVASTATIN. [Concomitant]
     Active Substance: SIMVASTATIN
  4. FLINTSTONE EXTRA C [Concomitant]
  5. CLARITIN [Concomitant]
     Active Substance: LORATADINE
  6. ADVIL [Concomitant]
     Active Substance: IBUPROFEN
  7. CULTURELLE DIGESTIVE HEALTH [Concomitant]
  8. OMEPRAZOLE. [Concomitant]
     Active Substance: OMEPRAZOLE

REACTIONS (2)
  - Sinusitis [None]
  - Ear infection [None]

NARRATIVE: CASE EVENT DATE: 20180821
